FAERS Safety Report 14562159 (Version 1)
Quarter: 2018Q1

REPORT INFORMATION
  Report Type: Spontaneous
  Country: US (occurrence: US)
  Receive Date: 20180221
  Receipt Date: 20180221
  Transmission Date: 20180509
  Serious: Yes (Other)
  Sender: FDA-Public Use
  Company Number: None

PATIENT
  Age: 64 Year
  Sex: Female
  Weight: 126 kg

DRUGS (7)
  1. GLUCOSAMINE [Concomitant]
     Active Substance: GLUCOSAMINE
  2. ADVIL [Concomitant]
     Active Substance: IBUPROFEN
  3. AMLODOPINE [Concomitant]
     Active Substance: AMLODIPINE BESYLATE
  4. CENTRUM SILVER [Concomitant]
     Active Substance: MINERALS\VITAMINS
  5. OSELTAMIVIR PHOSPHATE. [Suspect]
     Active Substance: OSELTAMIVIR PHOSPHATE
     Indication: INFLUENZA
     Dosage: ?          QUANTITY:10 CAPSULE(S);?
     Route: 048
  6. TOPROL XL [Concomitant]
     Active Substance: METOPROLOL SUCCINATE
  7. LOSARTAN. [Concomitant]
     Active Substance: LOSARTAN

REACTIONS (5)
  - Back pain [None]
  - Abdominal pain [None]
  - Diarrhoea [None]
  - Feeling abnormal [None]
  - Disorientation [None]

NARRATIVE: CASE EVENT DATE: 20180219
